FAERS Safety Report 23723791 (Version 2)
Quarter: 2024Q2

REPORT INFORMATION
  Report Type: Spontaneous
  Country: US (occurrence: US)
  Receive Date: 20240409
  Receipt Date: 20240415
  Transmission Date: 20240715
  Serious: Yes (Other)
  Sender: FDA-Public Use
  Company Number: US-BEH-2024170443

PATIENT
  Sex: Female

DRUGS (1)
  1. HIZENTRA [Suspect]
     Active Substance: HUMAN IMMUNOGLOBULIN G
     Indication: Chronic inflammatory demyelinating polyradiculoneuropathy
     Dosage: UNK, Q3W
     Route: 065

REACTIONS (4)
  - Infection [Unknown]
  - Abdominal pain [Unknown]
  - Subcutaneous emphysema [Unknown]
  - Intentional product use issue [Unknown]
